FAERS Safety Report 8570207-0 (Version None)
Quarter: 2012Q3

REPORT INFORMATION
  Report Type: 
  Country: None (occurrence: None)
  Receive Date: 20120803
  Receipt Date: 20120731
  Transmission Date: 20120928
  Serious: Yes (Hospitalization)
  Sender: FDA-Public Use
  Company Number: PHHO2012US010356

PATIENT
  Sex: Male
  Weight: 100.7 kg

DRUGS (26)
  1. BACITRACIN [Concomitant]
  2. FENTANYL CITRATE [Concomitant]
  3. MIRALAX [Concomitant]
  4. ESCITALOPRAM [Concomitant]
  5. SENNA-MINT WAF [Concomitant]
  6. FAMOTIDINE [Concomitant]
  7. FLUOROURACIL [Suspect]
     Dosage: 1400 MG/24HRS CIV OVER 120 HOURS
     Route: 042
     Dates: start: 20120715, end: 20120720
  8. PACLITAXEL [Suspect]
     Dosage: 228 MG QWK
     Route: 042
     Dates: start: 20120715, end: 20120720
  9. FLUOROURACIL [Suspect]
     Indication: SQUAMOUS CELL CARCINOMA
     Dosage: 1400 MG/24HRS CIV OVER 120 HOURS
     Route: 042
     Dates: start: 20120715, end: 20120706
  10. PACLITAXEL [Suspect]
     Indication: SQUAMOUS CELL CARCINOMA
     Dosage: 228 MG QWK
     Route: 042
     Dates: start: 20120702
  11. BLINDED NO TREATMENT RECEIVED [Suspect]
     Indication: SQUAMOUS CELL CARCINOMA
     Dosage: NO TREATMENT RECEIVED
  12. PLACEBO [Suspect]
     Indication: SQUAMOUS CELL CARCINOMA
     Dosage: NO TREATMENT RECEIVED
  13. HYDROXYUREA [Suspect]
     Indication: SQUAMOUS CELL CARCINOMA
     Dosage: 500 MG, UNK
     Route: 048
     Dates: start: 20120701, end: 20120706
  14. FILGRASTIM [Concomitant]
  15. FLUCONAZOLE [Concomitant]
  16. EUCERIN [Concomitant]
  17. AQUAPHOR [Concomitant]
  18. PROCHLORPERAZINE [Concomitant]
  19. ONDANSETRON [Concomitant]
  20. AFINITOR [Suspect]
     Indication: SQUAMOUS CELL CARCINOMA
     Dosage: NO TREATMENT RECEIVED
  21. LIDOCAINE [Concomitant]
  22. MORPHINE SULFATE [Concomitant]
  23. HYDROXYUREA [Suspect]
     Dosage: 500 MG, UNK
     Route: 048
     Dates: start: 20120715, end: 20120720
  24. AMOXICILLIN AND CLAVULANATE POTASSIUM [Concomitant]
  25. NEOSPORIN (NEOMYCIN SULFATE/POLYMYXIN B SULFATE) [Concomitant]
  26. ROSUVASTATIN [Concomitant]

REACTIONS (2)
  - NAUSEA [None]
  - DEHYDRATION [None]
